FAERS Safety Report 11910162 (Version 4)
Quarter: 2017Q1

REPORT INFORMATION
  Report Type: Spontaneous
  Country: US (occurrence: US)
  Receive Date: 20160112
  Receipt Date: 20170120
  Transmission Date: 20170428
  Serious: Yes (Other)
  Sender: FDA-Public Use
  Company Number: US-PFIZER INC-2016007371

PATIENT
  Age: 70 Year
  Sex: Female
  Weight: 56.24 kg

DRUGS (1)
  1. IBRANCE [Suspect]
     Active Substance: PALBOCICLIB
     Indication: BREAST CANCER FEMALE
     Dosage: 125 MG, CYCLIC (DAILY X 21 DAYS EVERY 28 DAYS)
     Route: 048
     Dates: start: 20151224

REACTIONS (4)
  - Thrombocytopenia [Unknown]
  - Fatigue [Unknown]
  - White blood cell count decreased [Unknown]
  - Haemoglobin decreased [Unknown]

NARRATIVE: CASE EVENT DATE: 20160113
